APPROVED DRUG PRODUCT: PRASUGREL
Active Ingredient: PRASUGREL HYDROCHLORIDE
Strength: EQ 10MG BASE
Dosage Form/Route: TABLET;ORAL
Application: A205926 | Product #002
Applicant: SENORES PHARMACEUTICALS INC
Approved: Jul 7, 2020 | RLD: No | RS: No | Type: DISCN